FAERS Safety Report 18747251 (Version 2)
Quarter: 2021Q1

REPORT INFORMATION
  Report Type: Report from Study
  Country: US (occurrence: US)
  Receive Date: 20210115
  Receipt Date: 20210225
  Transmission Date: 20210419
  Serious: Yes (Other)
  Sender: FDA-Public Use
  Company Number: US-ASTRAZENECA-2020SF60914

PATIENT
  Sex: Female

DRUGS (2)
  1. CALQUENCE [Suspect]
     Active Substance: ACALABRUTINIB
     Indication: ACUTE LYMPHOCYTIC LEUKAEMIA
     Route: 048
  2. CALQUENCE [Suspect]
     Active Substance: ACALABRUTINIB
     Indication: CHRONIC LYMPHOCYTIC LEUKAEMIA
     Route: 048

REACTIONS (8)
  - Asthenia [Unknown]
  - Procedural complication [Recovering/Resolving]
  - Diarrhoea [Unknown]
  - White blood cell count decreased [Unknown]
  - Nasal congestion [Unknown]
  - Constipation [Unknown]
  - Product dose omission issue [Unknown]
  - Hypoaesthesia [Unknown]
